FAERS Safety Report 17255123 (Version 1)
Quarter: 2020Q1

REPORT INFORMATION
  Report Type: Spontaneous
  Country: ES (occurrence: ES)
  Receive Date: 20200109
  Receipt Date: 20200109
  Transmission Date: 20200409
  Serious: Yes (Other)
  Sender: FDA-Public Use
  Company Number: ES-AUROBINDO-AUR-APL-2020-001567

PATIENT
  Sex: Female
  Weight: 16 kg

DRUGS (2)
  1. LEVETIRACETAM. [Suspect]
     Active Substance: LEVETIRACETAM
     Indication: EPILEPSY
     Dosage: 20 MILLIGRAM/KILOGRAM, ONCE A DAY (IN TWO DOSES)
     Route: 048
  2. DESMOPRESSIN [Interacting]
     Active Substance: DESMOPRESSIN
     Indication: URINE OUTPUT INCREASED
     Dosage: 5 MICROGRAM, TWO TIMES A DAY
     Route: 045

REACTIONS (2)
  - Drug interaction [Unknown]
  - Drug ineffective [Unknown]
